FAERS Safety Report 4504565-0 (Version None)
Quarter: 2004Q4

REPORT INFORMATION
  Report Type: 
  Country: None (occurrence: None)
  Receive Date: 20041118
  Receipt Date: 20041110
  Transmission Date: 20050328
  Serious: Yes (Other)
  Sender: FDA-Public Use
  Company Number: PHEH2004US12198

PATIENT

DRUGS (3)
  1. GLEEVEC [Suspect]
     Route: 048
  2. GEMZAR [Concomitant]
  3. CELEBREX [Concomitant]

REACTIONS (1)
  - ASEPTIC NECROSIS BONE [None]
